FAERS Safety Report 8211675 (Version 2)
Quarter: 2013Q3

REPORT INFORMATION
  Report Type: Spontaneous
  Country: US (occurrence: US)
  Receive Date: 20111029
  Receipt Date: 20130930
  Transmission Date: 20140515
  Serious: No
  Sender: FDA-Public Use
  Company Number: US-AMGEN-USASP2011010479

PATIENT
  Age: 58 Year
  Sex: Female

DRUGS (3)
  1. ENBREL [Suspect]
     Indication: RHEUMATOID ARTHRITIS
     Dosage: 50 MG, QWK
     Dates: start: 20000201, end: 201209
  2. METHOTREXATE [Concomitant]
     Dosage: UNK MG, QWK
  3. PREDNISONE                         /00044702/ [Concomitant]
     Dosage: UNK MG, UNK

REACTIONS (3)
  - Arthralgia [Not Recovered/Not Resolved]
  - Bunion [Recovered/Resolved]
  - Therapeutic response decreased [Not Recovered/Not Resolved]
